FAERS Safety Report 8516946 (Version 3)
Quarter: 2012Q4

REPORT INFORMATION
  Report Type: 
  Country: US (occurrence: US)
  Receive Date: 20120417
  Receipt Date: 20121226
  Transmission Date: 20130627
  Serious: Yes (Hospitalization)
  Sender: FDA-Public Use
  Company Number: US-BAYER-2012-034477

PATIENT
  Age: 23 Year
  Sex: Female
  Weight: 135.15 kg

DRUGS (20)
  1. YAZ [Suspect]
     Indication: MENSTRUAL DISORDER
     Dosage: UNK
     Route: 048
     Dates: start: 20110211, end: 20110413
  2. YAZ [Suspect]
     Indication: BLEEDING MENSTRUAL HEAVY
     Dosage: UNK
     Dates: end: 201105
  3. BEYAZ [Suspect]
     Indication: MENSTRUAL DISORDER
     Dosage: UNK
     Route: 048
     Dates: start: 201102, end: 20110413
  4. BEYAZ [Suspect]
     Indication: HEAVY PERIODS
  5. BENTYL [Concomitant]
     Indication: IRRITABLE BOWEL SYNDROME
     Dosage: UNK
     Dates: start: 2004
  6. NYSTATIN [Concomitant]
     Dosage: 100,000 units/g QHS for 14 days
     Route: 061
  7. CLOTRIMAZOLE-BETAMETHASONE 1% LOTION [Concomitant]
     Dosage: BID for 7 days
     Route: 061
  8. AUGMENTIN [Concomitant]
     Dosage: 875-125 mg BID for 10 doses
  9. FLEXERIL [Concomitant]
     Dosage: 10 mg, DAILY
  10. LEVAQUIN [Concomitant]
     Dosage: 750 mg, UNK
  11. LEXAPRO [Concomitant]
     Dosage: 10 mg, UNK
  12. PROMETHAZINE [Concomitant]
     Dosage: 25 mg, UNK
  13. MOBIC [Concomitant]
     Dosage: 7.5 mg, DAILY
  14. CLARITIN [Concomitant]
     Dosage: 10 mg, UNK
  15. PRILOSEC [Concomitant]
  16. ACIPHEX [Concomitant]
     Dosage: 20 mg, UNK
  17. HYDROCODONE W/ACETAMINOPHEN [Concomitant]
     Dosage: 7.5/650 mg three times daily, as needed
  18. AZITHROMYCIN [Concomitant]
     Dosage: 250 mg, UNK
  19. AUGMENTIN XR [Concomitant]
     Dosage: 1000-62.5 mg BID for 10 days
  20. ROCEPHIN [Concomitant]
     Dosage: 250 mg, UNK

REACTIONS (5)
  - Deep vein thrombosis [None]
  - Injury [None]
  - Pain [None]
  - Fear [None]
  - Off label use [None]
